FAERS Safety Report 6363499-X (Version None)
Quarter: 2009Q3

REPORT INFORMATION
  Report Type: 
  Country: None (occurrence: None)
  Receive Date: 20090919
  Receipt Date: 20090626
  Transmission Date: 20100115
  Serious: No
  Sender: FDA-Public Use
  Company Number: US-ABBOTT-09P-163-0582364-00

PATIENT
  Sex: Male
  Weight: 102.15 kg

DRUGS (4)
  1. HUMIRA [Suspect]
     Indication: PSORIASIS
     Dates: start: 20090605, end: 20090605
  2. HUMIRA [Suspect]
     Dates: start: 20090612, end: 20090612
  3. HUMIRA [Suspect]
     Dates: start: 20090626
  4. METHOTREXATE [Concomitant]
     Indication: DRUG USE FOR UNKNOWN INDICATION
     Dates: start: 20081213

REACTIONS (1)
  - SCRATCH [None]
